FAERS Safety Report 10906223 (Version 3)
Quarter: 2015Q2

REPORT INFORMATION
  Report Type: Spontaneous
  Country: DE (occurrence: DE)
  Receive Date: 20150311
  Receipt Date: 20150408
  Transmission Date: 20150821
  Serious: Yes (Death)
  Sender: FDA-Public Use
  Company Number: DE-ACTELION-A-CH2015-114341

PATIENT
  Age: 4 Month
  Sex: Male
  Weight: 5 kg

DRUGS (14)
  1. FUROSEMID [Concomitant]
     Active Substance: FUROSEMIDE
     Indication: ASCITES
  2. URSOFALK [Concomitant]
     Active Substance: URSODIOL
     Indication: CHOLESTASIS
     Dosage: UNK
     Dates: start: 201409
  3. ZAVESCA [Suspect]
     Active Substance: MIGLUSTAT
     Dosage: 5 MG, BID
     Route: 048
     Dates: start: 201410
  4. ETACRYNIC ACID [Concomitant]
     Indication: ASCITES
  5. SPIRONOLACTONE. [Concomitant]
     Active Substance: SPIRONOLACTONE
     Indication: OLIGURIA
     Dosage: UNK
     Dates: start: 201409
  6. VIGANTOLETTEN [Concomitant]
     Active Substance: CHOLECALCIFEROL
     Indication: PROPHYLAXIS
     Dosage: UNK
     Dates: start: 201406
  7. NOREPINEPHRINE [Concomitant]
     Active Substance: NOREPINEPHRINE\NOREPINEPHRINE BITARTRATE
     Indication: OLIGURIA
  8. FUROSEMID [Concomitant]
     Active Substance: FUROSEMIDE
     Indication: OLIGURIA
     Dosage: UNK
     Dates: start: 201409
  9. CEFUROXIM [Concomitant]
     Active Substance: CEFUROXIME
     Indication: INFECTION
     Dosage: UNK
     Dates: start: 201401
  10. SPIRONOLACTONE. [Concomitant]
     Active Substance: SPIRONOLACTONE
     Indication: ASCITES
  11. NOREPINEPHRINE [Concomitant]
     Active Substance: NOREPINEPHRINE\NOREPINEPHRINE BITARTRATE
     Indication: HYPOTONIA
     Dosage: UNK
     Dates: start: 201411
  12. ETACRYNIC ACID [Concomitant]
     Indication: OLIGURIA
     Dosage: UNK
     Dates: start: 201410
  13. ZAVESCA [Suspect]
     Active Substance: MIGLUSTAT
     Indication: NIEMANN-PICK DISEASE
     Dosage: 5 MG, TID
     Route: 048
     Dates: end: 20150127
  14. L-THYROXIN [Concomitant]
     Active Substance: LEVOTHYROXINE SODIUM
     Indication: EUTHYROID SICK SYNDROME
     Dosage: UNK
     Dates: start: 201401

REACTIONS (7)
  - Magnesium deficiency [Unknown]
  - Hepatorenal syndrome [Fatal]
  - Renal failure [Fatal]
  - Oliguria [Fatal]
  - Multi-organ failure [Fatal]
  - Liver disorder [Fatal]
  - Hypotonia [Unknown]

NARRATIVE: CASE EVENT DATE: 201410
